FAERS Safety Report 10610041 (Version 1)
Quarter: 2014Q4

REPORT INFORMATION
  Report Type: Spontaneous
  Country: FR (occurrence: FR)
  Receive Date: 20141126
  Receipt Date: 20141126
  Transmission Date: 20150529
  Serious: Yes (Hospitalization)
  Sender: FDA-Public Use
  Company Number: FR-009507513-1411FRA010979

PATIENT
  Age: 89 Year
  Sex: Male

DRUGS (14)
  1. NITROGLYCERIN. [Suspect]
     Active Substance: NITROGLYCERIN
     Indication: CORONARY ARTERY INSUFFICIENCY
     Dosage: UNK
     Route: 062
  2. PREVISCAN [Suspect]
     Active Substance: FLUINDIONE
     Dosage: UNK
     Route: 048
     Dates: start: 20130527
  3. NOVOMIX [Suspect]
     Active Substance: INSULIN ASPART
     Indication: TYPE 1 DIABETES MELLITUS
     Dosage: UNK
     Route: 058
  4. ACEBUTOLOL ZENTIVA [Suspect]
     Active Substance: ACEBUTOLOL HYDROCHLORIDE
     Dosage: UNK
     Route: 048
  5. KARDEGIC [Suspect]
     Active Substance: ASPIRIN LYSINE
     Dosage: UNK
  6. PREVISCAN [Suspect]
     Active Substance: FLUINDIONE
     Dosage: UNK
     Route: 048
     Dates: end: 20130525
  7. PERINDOPRIL [Suspect]
     Active Substance: PERINDOPRIL
     Dosage: UNK
     Route: 048
  8. PRAVASTATINE ZENTIVA [Suspect]
     Active Substance: PRAVASTATIN SODIUM
     Dosage: UNK
     Route: 048
  9. NICORANDIL [Suspect]
     Active Substance: NICORANDIL
     Indication: CORONARY ARTERY INSUFFICIENCY
     Dosage: UNK
     Route: 048
     Dates: end: 20130523
  10. AMOXICILLINE/CLAVULANIC ACID BIOGARAN [Suspect]
     Active Substance: AMOXICILLIN\CLAVULANIC ACID
     Indication: DERMO-HYPODERMITIS
     Dosage: UNK
     Route: 048
     Dates: start: 20130513
  11. AUGMENTIN [Concomitant]
     Active Substance: AMOXICILLIN\CLAVULANATE POTASSIUM
     Dosage: UNK
     Dates: start: 20130513
  12. SERESTA [Suspect]
     Active Substance: OXAZEPAM
     Dosage: UNK
     Route: 048
  13. DAFALGAN CODEINE [Suspect]
     Active Substance: ACETAMINOPHEN\CODEINE PHOSPHATE
     Dosage: UNK
     Route: 048
  14. NOVORAPID [Suspect]
     Active Substance: INSULIN ASPART
     Indication: TYPE 1 DIABETES MELLITUS
     Dosage: UNK

REACTIONS (12)
  - Diverticulum [None]
  - Headache [None]
  - Malaise [None]
  - Vision blurred [None]
  - Oesophagitis ulcerative [Recovering/Resolving]
  - Hyperhidrosis [None]
  - Hypotension [None]
  - Anaemia [None]
  - Abdominal pain [None]
  - Weight decreased [None]
  - Hiatus hernia [None]
  - Dysphagia [None]

NARRATIVE: CASE EVENT DATE: 201305
